FAERS Safety Report 21457492 (Version 5)
Quarter: 2022Q4

REPORT INFORMATION
  Report Type: Spontaneous
  Country: CO (occurrence: CO)
  Receive Date: 20221014
  Receipt Date: 20221128
  Transmission Date: 20230113
  Serious: Yes (Disabling, Other)
  Sender: FDA-Public Use
  Company Number: CO-PFIZER INC-PV202200060036

PATIENT
  Age: 71 Year
  Sex: Female

DRUGS (2)
  1. ENBREL [Suspect]
     Active Substance: ETANERCEPT
     Indication: Rheumatoid arthritis
     Dosage: 50 MG, WEEKLY (EVERY 8 DAYS)
     Route: 058
     Dates: start: 2007, end: 202208
  2. METHOTREXATE SODIUM [Concomitant]
     Active Substance: METHOTREXATE SODIUM
     Dosage: UNK

REACTIONS (15)
  - Gait disturbance [Unknown]
  - Pain [Unknown]
  - Feeling hot [Unknown]
  - Pain in extremity [Unknown]
  - General physical health deterioration [Unknown]
  - Lymphoedema [Unknown]
  - Hypoaesthesia [Unknown]
  - Agitation [Unknown]
  - Product prescribing error [Unknown]
  - Arthropathy [Unknown]
  - Malaise [Unknown]
  - Joint stiffness [Not Recovered/Not Resolved]
  - Anxiety [Unknown]
  - Peripheral swelling [Unknown]
  - Arthralgia [Unknown]
